FAERS Safety Report 6187690-0 (Version None)
Quarter: 2009Q2

REPORT INFORMATION
  Report Type: 
  Country: None (occurrence: None)
  Receive Date: 20090511
  Receipt Date: 20090423
  Transmission Date: 20091009
  Serious: Yes (Hospitalization)
  Sender: FDA-Public Use
  Company Number: 2009050028

PATIENT
  Age: 66 Year
  Sex: Female

DRUGS (6)
  1. LUPRAC (TORASEMIDE) [Suspect]
     Indication: ATRIAL SEPTAL DEFECT
     Dosage: ORAL
     Route: 048
     Dates: start: 20080901
  2. SILECE (FLUNITRAZEPAM) [Suspect]
     Dosage: ORAL
     Route: 048
     Dates: start: 20081101
  3. AMARYL [Suspect]
     Indication: DIABETES MELLITUS
     Dosage: (1 MG), ORAL
     Route: 048
  4. AMLODIPINE BESYLATE [Suspect]
     Indication: ATRIAL SEPTAL DEFECT
     Dosage: (5 MG)
     Dates: start: 20080901
  5. ASPIRIN TAB [Suspect]
     Dosage: (100 MG), ORAL
     Route: 048
     Dates: start: 20090201
  6. KAIGEN KAZE [Suspect]
     Indication: NASOPHARYNGITIS
     Dosage: (2 DOSAGE FORMS)
     Dates: start: 20090404

REACTIONS (9)
  - ALANINE AMINOTRANSFERASE INCREASED [None]
  - ANOREXIA [None]
  - ASPARTATE AMINOTRANSFERASE INCREASED [None]
  - BLOOD ALKALINE PHOSPHATASE INCREASED [None]
  - GAMMA-GLUTAMYLTRANSFERASE INCREASED [None]
  - HEPATIC FUNCTION ABNORMAL [None]
  - JAUNDICE [None]
  - LOSS OF CONSCIOUSNESS [None]
  - NASOPHARYNGITIS [None]
